FAERS Safety Report 19544633 (Version 1)
Quarter: 2021Q3

REPORT INFORMATION
  Report Type: Spontaneous
  Country: FR (occurrence: FR)
  Receive Date: 20210713
  Receipt Date: 20210713
  Transmission Date: 20211014
  Serious: Yes (Other)
  Sender: FDA-Public Use
  Company Number: FR-SAMSUNG BIOEPIS-SB-2021-16623

PATIENT
  Sex: Male

DRUGS (5)
  1. ADALIMUMAB [Suspect]
     Active Substance: ADALIMUMAB
     Indication: CHRONIC GRANULOMATOUS DISEASE
     Dosage: 24 MILLIGRAM/SQ. METER, Q2W
     Route: 058
  2. REMICADE [Suspect]
     Active Substance: INFLIXIMAB
     Indication: CHRONIC GRANULOMATOUS DISEASE
     Dosage: DOSE OF 5 OR 10 MG/KG/INFUSION, USUALLY AT ZERO, TWO AND SIX WEEKS, THEN EVERY FOUR TO EIGHT WEEKS
     Route: 042
  3. COTRIMOXAZOLE [Concomitant]
     Active Substance: SULFAMETHOXAZOLE\TRIMETHOPRIM
     Indication: INFECTION PROPHYLAXIS
     Dosage: UNKNOWN
     Route: 065
  4. AZATHIOPRINE. [Suspect]
     Active Substance: AZATHIOPRINE
     Indication: IMMUNOSUPPRESSANT DRUG THERAPY
     Dosage: UNKNOWN
     Route: 065
  5. AZATHIOPRINE. [Suspect]
     Active Substance: AZATHIOPRINE
     Indication: CHRONIC GRANULOMATOUS DISEASE

REACTIONS (3)
  - Pulmonary mucormycosis [Unknown]
  - Off label use [Unknown]
  - Therapeutic product effect incomplete [Unknown]
